FAERS Safety Report 11795683 (Version 1)
Quarter: 2015Q4

REPORT INFORMATION
  Report Type: Spontaneous
  Country: US (occurrence: US)
  Receive Date: 20151202
  Receipt Date: 20151202
  Transmission Date: 20160305
  Serious: No
  Sender: FDA-Public Use
  Company Number: ALCN2014US007267

PATIENT
  Sex: Male

DRUGS (1)
  1. DORZOLAMIDE,TIMOLOL [Suspect]
     Active Substance: DORZOLAMIDE\TIMOLOL
     Dosage: 1 UNK, UNK
     Route: 047

REACTIONS (4)
  - Sleep disorder [Unknown]
  - Oropharyngeal pain [Unknown]
  - Dry eye [Unknown]
  - Dyspnoea [Unknown]
